FAERS Safety Report 9826142 (Version 1)
Quarter: 2014Q1

REPORT INFORMATION
  Report Type: Spontaneous
  Country: US (occurrence: None)
  Receive Date: 20140116
  Receipt Date: 20140116
  Transmission Date: 20141002
  Serious: Yes (Disabling)
  Sender: FDA-Public Use
  Company Number: None

PATIENT
  Age: 75 Year
  Sex: Female
  Weight: 67.59 kg

DRUGS (2)
  1. PRAVASTATIN [Suspect]
     Indication: BLOOD CHOLESTEROL INCREASED
     Dosage: 1/2 PILL OF 10MG
     Dates: start: 20120216, end: 20131231
  2. PRAVASTATIN [Suspect]
     Dosage: 1/2 PILL OF 10MG
     Dates: start: 20120216, end: 20131231

REACTIONS (4)
  - Pain in extremity [None]
  - Asthenia [None]
  - Balance disorder [None]
  - Muscular weakness [None]
